FAERS Safety Report 13821164 (Version 1)
Quarter: 2017Q3

REPORT INFORMATION
  Report Type: Spontaneous
  Country: BR (occurrence: BR)
  Receive Date: 20170801
  Receipt Date: 20170801
  Transmission Date: 20171127
  Serious: Yes (Death, Hospitalization)
  Sender: FDA-Public Use
  Company Number: BR-SILVERGATE PHARMACEUTICALS, INC.-2017SIL00005

PATIENT

DRUGS (4)
  1. DOXORUBICIN [Suspect]
     Active Substance: DOXORUBICIN
     Indication: OSTEOSARCOMA
     Dosage: 25 MG/M2, (ON DAYS 1, 2, AND 3 OF WEEK 0)
     Route: 042
  2. METHOTREXATE. [Suspect]
     Active Substance: METHOTREXATE
     Indication: OSTEOSARCOMA
     Dosage: 8 G/M2
     Route: 042
  3. CISPLATIN. [Suspect]
     Active Substance: CISPLATIN
     Indication: OSTEOSARCOMA
     Dosage: 60 MG/M2, (ON DAYS 1 AND 2 OF WEEK 0)
     Route: 042
  4. FOLINIC ACID [Concomitant]
     Active Substance: LEUCOVORIN
     Dosage: 15 MG, EVERY 6 HOURS STARTING 24 HOURS AFTER HDM INFUSION
     Route: 065

REACTIONS (4)
  - Stomatitis [Unknown]
  - Central nervous system haemorrhage [Fatal]
  - Brain herniation [Fatal]
  - Skin toxicity [Unknown]
